FAERS Safety Report 12805535 (Version 2)
Quarter: 2016Q4

REPORT INFORMATION
  Report Type: Report from Study
  Country: CO (occurrence: CO)
  Receive Date: 20161004
  Receipt Date: 20161012
  Transmission Date: 20170207
  Serious: Yes (Disabling, Other)
  Sender: FDA-Public Use
  Company Number: CO-ROCHE-1637143

PATIENT
  Age: 65 Year
  Sex: Female
  Weight: 65 kg

DRUGS (33)
  1. NPH INSULIN [Concomitant]
     Active Substance: INSULIN BEEF
     Indication: DIABETES MELLITUS
     Route: 065
     Dates: start: 2004, end: 20150605
  2. NYSTATIN. [Concomitant]
     Active Substance: NYSTATIN
     Indication: MUCOSAL INFLAMMATION
     Dosage: DOSE: 15 CC
     Route: 065
     Dates: start: 20150405, end: 20150412
  3. NYSTATIN. [Concomitant]
     Active Substance: NYSTATIN
     Dosage: 15 CC DAILY
     Route: 065
     Dates: start: 20150827
  4. OMEPRAZOL [Concomitant]
     Active Substance: OMEPRAZOLE
     Route: 065
     Dates: start: 20150605
  5. CEPHALOTHIN [Concomitant]
     Active Substance: CEPHALOTHIN
     Indication: URINARY TRACT INFECTION
     Route: 065
     Dates: start: 20150705, end: 20150706
  6. OXYGEN. [Concomitant]
     Active Substance: OXYGEN
     Indication: HYPOXIA
     Dosage: DOSE: 317 MIN
     Route: 065
     Dates: start: 20150605, end: 20150612
  7. HYDROCORTISONE. [Concomitant]
     Active Substance: HYDROCORTISONE
     Indication: SEPSIS
     Route: 065
     Dates: start: 20160223, end: 20160223
  8. RITUXIMAB [Suspect]
     Active Substance: RITUXIMAB
     Indication: NON-HODGKIN^S LYMPHOMA
     Dosage: SINGLE INFUSION
     Route: 042
  9. LORATADINE. [Concomitant]
     Active Substance: LORATADINE
     Indication: COUGH
     Route: 065
     Dates: start: 20140606, end: 20140606
  10. SUCRALFATE. [Concomitant]
     Active Substance: SUCRALFATE
     Indication: MUCOSAL INFLAMMATION
     Dosage: DOSE: 4 ENEVELOPE/DAILY
     Route: 065
     Dates: start: 20150407, end: 20150412
  11. METRONIDAZOLE. [Concomitant]
     Active Substance: METRONIDAZOLE
     Indication: INTESTINAL SEPSIS
     Route: 065
     Dates: start: 20150606, end: 20150613
  12. NIFEDIPINE. [Concomitant]
     Active Substance: NIFEDIPINE
     Route: 065
     Dates: start: 20150607
  13. HEPARIN SODIUM. [Concomitant]
     Active Substance: HEPARIN SODIUM
     Indication: THROMBOSIS PROPHYLAXIS
     Dosage: 5000 UI PER DAY
     Route: 065
     Dates: start: 20150705, end: 20150706
  14. TAZOBACTAM/PIPERACILLIN [Concomitant]
     Active Substance: PIPERACILLIN SODIUM\TAZOBACTAM SODIUM
     Indication: INTESTINAL SEPSIS
     Route: 065
     Dates: start: 20150605, end: 20150613
  15. LOSARTAN. [Concomitant]
     Active Substance: LOSARTAN
     Indication: HYPERTENSION
     Route: 065
     Dates: start: 1980, end: 20150605
  16. NPH INSULIN [Concomitant]
     Active Substance: INSULIN BEEF
     Route: 065
     Dates: start: 20150706, end: 20150707
  17. ACETAMINOPHEN. [Concomitant]
     Active Substance: ACETAMINOPHEN
     Indication: PYREXIA
     Route: 065
     Dates: start: 20140922, end: 20141005
  18. ACETAMINOPHEN. [Concomitant]
     Active Substance: ACETAMINOPHEN
     Indication: HEADACHE
     Route: 065
     Dates: start: 20141009, end: 20141018
  19. HUMAN INSULIN [Concomitant]
     Active Substance: INSULIN HUMAN
     Indication: TYPE 2 DIABETES MELLITUS
     Dosage: 65 UI SC DAILY
     Route: 058
     Dates: start: 20150704, end: 20150708
  20. RANITIDINE. [Concomitant]
     Active Substance: RANITIDINE
     Dosage: 50 MG SINGLE DOSE IN
     Route: 065
     Dates: start: 20150704, end: 20150704
  21. NPH INSULIN [Concomitant]
     Active Substance: INSULIN BEEF
     Route: 065
     Dates: start: 2004, end: 20150605
  22. SUCRALFATE. [Concomitant]
     Active Substance: SUCRALFATE
     Dosage: 4 PAPERS DAILY
     Route: 065
     Dates: start: 20150827
  23. INSULIN LISPRO [Concomitant]
     Active Substance: INSULIN LISPRO
     Indication: TYPE 2 DIABETES MELLITUS
     Route: 065
     Dates: start: 20150612
  24. RITUXIMAB [Suspect]
     Active Substance: RITUXIMAB
     Indication: NON-HODGKIN^S LYMPHOMA
     Dosage: LAST DOSE PRIOR TO SAE-  20/MAY/2015
     Route: 058
     Dates: start: 20140606, end: 20150914
  25. LORATADINE. [Concomitant]
     Active Substance: LORATADINE
     Indication: INFLUENZA
     Route: 065
     Dates: start: 20140922, end: 20141005
  26. LOW MOLECULAR WEIGHT HEPARIN [Concomitant]
     Active Substance: UNSPECIFIED INGREDIENT
     Route: 065
     Dates: start: 20150706, end: 20150707
  27. MEROPENEM. [Concomitant]
     Active Substance: MEROPENEM
     Indication: URINARY TRACT INFECTION
     Dosage: 3 GR
     Route: 065
     Dates: start: 20150704, end: 20150708
  28. NPH INSULIN [Concomitant]
     Active Substance: INSULIN BEEF
     Indication: DIABETES MELLITUS
     Route: 065
     Dates: start: 20150706, end: 20150706
  29. ACETAMINOPHEN. [Concomitant]
     Active Substance: ACETAMINOPHEN
     Indication: PAIN
     Route: 065
     Dates: start: 20140704, end: 20140704
  30. LOW MOLECULAR WEIGHT HEPARIN [Concomitant]
     Active Substance: UNSPECIFIED INGREDIENT
     Indication: DIABETES MELLITUS
     Route: 065
     Dates: start: 20150607, end: 20150614
  31. CEPHALEXIN. [Concomitant]
     Active Substance: CEPHALEXIN
     Indication: URINARY TRACT INFECTION
     Route: 065
     Dates: start: 20150615, end: 20150623
  32. ERTAPENEM [Concomitant]
     Active Substance: ERTAPENEM
     Indication: MUCOSAL INFLAMMATION
     Dosage: 1 GR DAILY
     Route: 065
     Dates: start: 20150704, end: 20150708
  33. METOCLOPRAMIDE. [Concomitant]
     Active Substance: METOCLOPRAMIDE
     Indication: NAUSEA
     Dosage: 10 MG SINGLE DOSE IN
     Route: 065
     Dates: start: 20150704, end: 20150704

REACTIONS (2)
  - Neutropenia [Not Recovered/Not Resolved]
  - Leukopenia [Not Recovered/Not Resolved]

NARRATIVE: CASE EVENT DATE: 20150413
